FAERS Safety Report 4453426-4 (Version None)
Quarter: 2004Q3

REPORT INFORMATION
  Report Type: 
  Country: None (occurrence: None)
  Receive Date: 20040920
  Receipt Date: 20040909
  Transmission Date: 20050211
  Serious: Yes (Death)
  Sender: FDA-Public Use
  Company Number: BE-JNJFOC-20040803003

PATIENT
  Age: 42 Year
  Sex: Female

DRUGS (5)
  1. PROPULSID [Suspect]
     Route: 049
     Dates: start: 20030312, end: 20040414
  2. EPOETIN ALFA [Concomitant]
  3. INSULIN MIXTARD [Concomitant]
  4. LOSEC [Concomitant]
  5. ALPHA LEO [Concomitant]

REACTIONS (1)
  - CACHEXIA [None]
